FAERS Safety Report 5801342-5 (Version None)
Quarter: 2008Q3

REPORT INFORMATION
  Report Type: 
  Country: None (occurrence: None)
  Receive Date: 20080703
  Receipt Date: 20080703
  Transmission Date: 20090109
  Serious: Yes (Life-Threatening, Hospitalization)
  Sender: FDA-Public Use
  Company Number: None

PATIENT
  Sex: Male

DRUGS (1)
  1. TAXOL [Suspect]
     Dates: start: 20040610

REACTIONS (2)
  - ISCHAEMIC CARDIOMYOPATHY [None]
  - THROMBOSIS [None]
